FAERS Safety Report 10306257 (Version 2)
Quarter: 2014Q3

REPORT INFORMATION
  Report Type: Spontaneous
  Country: AU (occurrence: AU)
  Receive Date: 20140715
  Receipt Date: 20140917
  Transmission Date: 20150326
  Serious: Yes (Other)
  Sender: FDA-Public Use
  Company Number: AU-PFIZER INC-2014192667

PATIENT
  Age: 29 Year
  Sex: Female
  Weight: 110 kg

DRUGS (7)
  1. CLONAZEPAM. [Suspect]
     Active Substance: CLONAZEPAM
     Dosage: 21 MG, UNK
     Route: 048
  2. FLUOXETINE [Suspect]
     Active Substance: FLUOXETINE\FLUOXETINE HYDROCHLORIDE
     Dosage: 500 MG, UNK
     Route: 048
  3. TOLTERODINE TARTRATE. [Suspect]
     Active Substance: TOLTERODINE TARTRATE
     Dosage: 14 MG, UNK
     Route: 048
  4. ZOPICLONE [Suspect]
     Active Substance: ZOPICLONE
     Dosage: 78.5 MG, UNK
     Route: 048
  5. PREGABALIN. [Suspect]
     Active Substance: PREGABALIN
     Dosage: 1250 MG, UNK
     Route: 048
  6. TRAMADOL HCL [Suspect]
     Active Substance: TRAMADOL HYDROCHLORIDE
     Dosage: 3 G, UNK
     Route: 048
  7. QUETIAPINE FUMARATE. [Suspect]
     Active Substance: QUETIAPINE FUMARATE
     Dosage: 4.2 G, UNK
     Route: 048

REACTIONS (2)
  - Toxicity to various agents [Unknown]
  - Depressed level of consciousness [Unknown]
